FAERS Safety Report 6622224-5 (Version None)
Quarter: 2010Q1

REPORT INFORMATION
  Report Type: 
  Country: None (occurrence: None)
  Receive Date: 20100310
  Receipt Date: 20100301
  Transmission Date: 20100710
  Serious: Yes (Other)
  Sender: FDA-Public Use
  Company Number: US-BIOGENIDEC-2010BI005473

PATIENT
  Age: 43 Year
  Sex: Female

DRUGS (1)
  1. AVONEX [Suspect]
     Indication: MULTIPLE SCLEROSIS
     Route: 030
     Dates: start: 20091105, end: 20100113

REACTIONS (6)
  - ABDOMINAL HERNIA [None]
  - ABDOMINAL PAIN [None]
  - ADVERSE DRUG REACTION [None]
  - ARTHRALGIA [None]
  - MASS [None]
  - NEPHROLITHIASIS [None]
